FAERS Safety Report 6203929-7 (Version None)
Quarter: 2009Q2

REPORT INFORMATION
  Report Type: 
  Country: None (occurrence: None)
  Receive Date: 20090526
  Receipt Date: 20090526
  Transmission Date: 20091009
  Serious: Yes (Other)
  Sender: FDA-Public Use
  Company Number: None

PATIENT
  Sex: Male
  Weight: 76.2043 kg

DRUGS (2)
  1. TIOTROPIUM BROMIDE MONOHYDRATE 18 UG PFIZER [Suspect]
     Indication: CHRONIC OBSTRUCTIVE PULMONARY DISEASE
     Dosage: ONE INHALATION DAILY INHAL
     Route: 055
     Dates: start: 20090503, end: 20090522
  2. PANTOPRAZOLE 40 MG APO [Suspect]
     Indication: GASTROOESOPHAGEAL REFLUX DISEASE
     Dosage: 1 TO 2 DAILY PO
     Route: 048
     Dates: start: 20090503, end: 20090522

REACTIONS (6)
  - ABASIA [None]
  - ACTIVITIES OF DAILY LIVING IMPAIRED [None]
  - HYPERSENSITIVITY [None]
  - OESOPHAGEAL PAIN [None]
  - PAIN IN EXTREMITY [None]
  - TOTAL LUNG CAPACITY DECREASED [None]
